FAERS Safety Report 6067202-2 (Version None)
Quarter: 2009Q1

REPORT INFORMATION
  Report Type: 
  Country: None (occurrence: None)
  Receive Date: 20090205
  Receipt Date: 20090126
  Transmission Date: 20090719
  Serious: Yes (Other)
  Sender: FDA-Public Use
  Company Number: PHHY2009BR02955

PATIENT
  Sex: Female
  Weight: 87 kg

DRUGS (2)
  1. METHERGINE [Suspect]
     Dosage: 0.125 MG, Q6H
     Route: 048
     Dates: start: 20090121, end: 20090123
  2. LISADOR [Concomitant]
     Dosage: UNK
     Dates: start: 20090119

REACTIONS (2)
  - DRUG EXPOSURE VIA BREAST MILK [None]
  - SUTURE RELATED COMPLICATION [None]
